FAERS Safety Report 23223815 (Version 2)
Quarter: 2024Q1

REPORT INFORMATION
  Report Type: Spontaneous
  Country: US (occurrence: US)
  Receive Date: 20231124
  Receipt Date: 20240107
  Transmission Date: 20240410
  Serious: Yes (Death)
  Sender: FDA-Public Use
  Company Number: ENDB23-04362

PATIENT
  Age: 71 Year
  Sex: Male
  Weight: 115.19 kg

DRUGS (7)
  1. AVEED [Suspect]
     Active Substance: TESTOSTERONE UNDECANOATE
     Indication: Testicular failure
     Dosage: 750 MILLIGRAM (3ML), ONCE EVERY 10WK
     Route: 030
     Dates: start: 20150618, end: 20230825
  2. AVEED [Suspect]
     Active Substance: TESTOSTERONE UNDECANOATE
     Dosage: 750 MILLIGRAM, ONCE EVERY 10WK (MAINTENANCE DOSE)
     Route: 030
     Dates: start: 201507
  3. ELIQUIS [Concomitant]
     Active Substance: APIXABAN
     Indication: Product used for unknown indication
     Dosage: UNK UNKNOWN, BID
     Route: 048
  4. METOPROLOL [Concomitant]
     Active Substance: METOPROLOL
     Indication: Product used for unknown indication
     Dosage: 100 UNKNOWN, OD
     Route: 048
  5. LEVOTHYROXINE [Concomitant]
     Active Substance: LEVOTHYROXINE
     Indication: Product used for unknown indication
     Dosage: 125 MILLIGRAM, OD
     Route: 065
  6. HYDROCHLOROTHIAZIDE [Concomitant]
     Active Substance: HYDROCHLOROTHIAZIDE
     Indication: Product used for unknown indication
     Dosage: UNK UNKNOWN, UNKNOWN
     Route: 065
  7. HYDROCODONE;IBUPROFEN [Concomitant]
     Indication: Product used for unknown indication
     Dosage: UNK UNKNOWN, UNKNOWN
     Route: 065

REACTIONS (1)
  - Death [Fatal]

NARRATIVE: CASE EVENT DATE: 20231006
